FAERS Safety Report 6192655-9 (Version None)
Quarter: 2009Q2

REPORT INFORMATION
  Report Type: 
  Country: None (occurrence: None)
  Receive Date: 20090518
  Receipt Date: 20090505
  Transmission Date: 20091009
  Serious: Yes (Other)
  Sender: FDA-Public Use
  Company Number: AU-ROCHE-621333

PATIENT

DRUGS (1)
  1. MYFORTIC (NON-ROCHE/NON-COMPARATOR) [Suspect]
     Indication: DRUG USE FOR UNKNOWN INDICATION
     Route: 065

REACTIONS (1)
  - APLASIA PURE RED CELL [None]
